FAERS Safety Report 8448363-4 (Version None)
Quarter: 2012Q2

REPORT INFORMATION
  Report Type: 
  Country: None (occurrence: None)
  Receive Date: 20120619
  Receipt Date: 20120606
  Transmission Date: 20120825
  Serious: Yes (Death, Other)
  Sender: FDA-Public Use
  Company Number: TR-ROCHE-1066720

PATIENT
  Sex: Female

DRUGS (2)
  1. XELODA [Suspect]
     Indication: METASTASES TO LUNG
  2. XELODA [Suspect]
     Indication: GASTRIC CANCER
     Route: 048
     Dates: start: 20120430

REACTIONS (4)
  - OEDEMA PERIPHERAL [None]
  - CARDIAC FAILURE [None]
  - SWOLLEN TONGUE [None]
  - RESPIRATORY DISTRESS [None]
